FAERS Safety Report 9725282 (Version 1)
Quarter: 2013Q4

REPORT INFORMATION
  Report Type: Spontaneous
  Country: US (occurrence: None)
  Receive Date: 20131202
  Receipt Date: 20131202
  Transmission Date: 20140711
  Serious: No
  Sender: FDA-Public Use
  Company Number: None

PATIENT
  Age: 70 Year
  Sex: Female
  Weight: 113.4 kg

DRUGS (1)
  1. PRAVASTATIN SODIUM [Suspect]
     Indication: BLOOD CHOLESTEROL INCREASED
     Route: 048
     Dates: start: 20130920, end: 20131129

REACTIONS (10)
  - Muscle spasms [None]
  - Condition aggravated [None]
  - Activities of daily living impaired [None]
  - Gait disturbance [None]
  - Mobility decreased [None]
  - Impaired driving ability [None]
  - Stress [None]
  - Walking aid user [None]
  - Walking aid user [None]
  - Abdominal pain upper [None]
